FAERS Safety Report 9175544 (Version 1)
Quarter: 2013Q1

REPORT INFORMATION
  Report Type: Spontaneous
  Country: US (occurrence: US)
  Receive Date: 20130320
  Receipt Date: 20130320
  Transmission Date: 20140127
  Serious: No
  Sender: FDA-Public Use
  Company Number: US-PFIZER INC-2013087151

PATIENT
  Sex: Female

DRUGS (2)
  1. ZITHROMAX [Suspect]
     Indication: INFLUENZA
     Dosage: UNK
  2. ZITHROMAX [Suspect]
     Indication: BRONCHITIS

REACTIONS (1)
  - Heart rate increased [Unknown]
